FAERS Safety Report 9124056 (Version 1)
Quarter: 2013Q1

REPORT INFORMATION
  Report Type: Spontaneous
  Country: JP (occurrence: JP)
  Receive Date: 20130116
  Receipt Date: 20130116
  Transmission Date: 20140127
  Serious: Yes (Other)
  Sender: FDA-Public Use
  Company Number: JP-009507513-1301JPN005349

PATIENT
  Age: 65 Year
  Sex: Female

DRUGS (1)
  1. FOSAMAC TABLETS 35MG [Suspect]
     Dosage: UNK
     Route: 048
     Dates: start: 201109, end: 201201

REACTIONS (1)
  - Drug-induced liver injury [Unknown]
